FAERS Safety Report 8681254 (Version 2)
Quarter: 2013Q4

REPORT INFORMATION
  Report Type: Spontaneous
  Country: JP (occurrence: JP)
  Receive Date: 20120725
  Receipt Date: 20131031
  Transmission Date: 20140711
  Serious: Yes (Hospitalization, Other)
  Sender: FDA-Public Use
  Company Number: JP-009507513-2012SP035826

PATIENT
  Age: 61 Year
  Sex: Female

DRUGS (1)
  1. FARESTON [Suspect]
     Indication: BREAST CANCER
     Dosage: 120 MG, QD
     Route: 065
     Dates: start: 200707, end: 200911

REACTIONS (1)
  - Endometrial stromal sarcoma [Recovered/Resolved]
